FAERS Safety Report 21623452 (Version 1)
Quarter: 2022Q4

REPORT INFORMATION
  Report Type: Spontaneous
  Country: AU (occurrence: AU)
  Receive Date: 20221121
  Receipt Date: 20221121
  Transmission Date: 20230112
  Serious: Yes (Hospitalization, Other)
  Sender: FDA-Public Use
  Company Number: None

PATIENT
  Sex: Male

DRUGS (2)
  1. INFLIXIMAB [Suspect]
     Active Substance: INFLIXIMAB
     Indication: Ankylosing spondylitis
     Dosage: RECOMBINANT, INTRAVENOUS INFUSION
     Route: 041
     Dates: start: 2018
  2. ETANERCEPT [Suspect]
     Active Substance: ETANERCEPT
     Indication: Psoriasis
     Dosage: UNKNOWN
     Route: 065

REACTIONS (3)
  - Pulmonary embolism [Recovering/Resolving]
  - Ankylosing spondylitis [Recovering/Resolving]
  - Skin lesion [Unknown]
